FAERS Safety Report 8431535-2 (Version None)
Quarter: 2012Q2

REPORT INFORMATION
  Report Type: 
  Country: None (occurrence: None)
  Receive Date: 20120323
  Receipt Date: 20110620
  Transmission Date: 20120825
  Serious: Yes (Other)
  Sender: FDA-Public Use
  Company Number: 163-21880-11062711

PATIENT
  Age: 70 Year
  Sex: Female
  Weight: 132.9039 kg

DRUGS (12)
  1. NEXIUM [Concomitant]
  2. CALCIUM D(OS-CAL) [Concomitant]
  3. REVLIMID [Suspect]
     Indication: MULTIPLE MYELOMA
     Dosage: 10 MG, 1 IN 1 D, PO
     Route: 048
     Dates: start: 20110301
  4. ALLOPURINOL [Concomitant]
  5. AMLODIPINE [Concomitant]
  6. PROZAC [Concomitant]
  7. SYNTHROID [Concomitant]
  8. CALCITRIOL [Concomitant]
  9. METOPROLOL TARTRATE [Concomitant]
  10. NORVASC [Concomitant]
  11. DEXAMETHASONE [Concomitant]
  12. LASIX [Concomitant]

REACTIONS (1)
  - THROMBOSIS [None]
